FAERS Safety Report 24537411 (Version 4)
Quarter: 2024Q4

REPORT INFORMATION
  Report Type: Report from Study
  Country: US (occurrence: US)
  Receive Date: 20241022
  Receipt Date: 20241205
  Transmission Date: 20250114
  Serious: Yes (Hospitalization, Other)
  Sender: ARGENX BVBA
  Company Number: US-ARGENX-2024-ARGX-US008642

PATIENT

DRUGS (2)
  1. VYVGART HYTRULO [Suspect]
     Active Substance: EFGARTIGIMOD ALFA\HYALURONIDASE-QVFC
     Indication: Myasthenia gravis
     Dosage: UNK
     Route: 058
     Dates: start: 20241001
  2. PREDNISONE [Concomitant]
     Active Substance: PREDNISONE
     Indication: Product used for unknown indication
     Route: 065

REACTIONS (11)
  - Intestinal obstruction [Unknown]
  - Pneumonia klebsiella [Unknown]
  - Sepsis [Unknown]
  - Hypotension [Unknown]
  - Urinary tract infection [Unknown]
  - Lymphoedema [Unknown]
  - Heart rate irregular [Unknown]
  - Device occlusion [Unknown]
  - Ecchymosis [Unknown]
  - Staphylococcal infection [Unknown]
  - Fungal infection [Unknown]

NARRATIVE: CASE EVENT DATE: 20241001
